FAERS Safety Report 10119559 (Version 2)
Quarter: 2014Q2

REPORT INFORMATION
  Report Type: Spontaneous
  Country: US (occurrence: US)
  Receive Date: 20140425
  Receipt Date: 20140618
  Transmission Date: 20141212
  Serious: Yes (Other)
  Sender: FDA-Public Use
  Company Number: US-PFIZER INC-2014111280

PATIENT
  Age: 57 Year
  Sex: Male
  Weight: 76 kg

DRUGS (14)
  1. XALKORI [Suspect]
     Indication: NON-SMALL CELL LUNG CANCER METASTATIC
     Dosage: 250 MG, 2X/DAY
     Dates: start: 20140331
  2. XALKORI [Suspect]
     Dosage: 250 MG, 1X/DAY
     Route: 048
     Dates: end: 20140411
  3. ALEVE [Concomitant]
     Indication: PAIN
     Dosage: 220 MG, ONCE DAILY AS NEEDED
     Route: 048
  4. ASPIR 81 [Concomitant]
     Dosage: 81 MG, 1X/DAY
     Route: 048
  5. CIPROFLOXACIN HYDROCHLORIDE [Concomitant]
     Indication: OCULAR HYPERAEMIA
     Dosage: 0.3% DROPS; 1 OR 2 DROPS
     Route: 047
  6. DEXAMETHASONE [Concomitant]
     Dosage: 6 MG, 3X/DAY
     Route: 048
  7. NAPHAZOLINE HYDROCHLORIDE/GLYCERIN [Concomitant]
     Indication: OCULAR HYPERAEMIA
     Dosage: 0.012-0.2 % DROPS, 1 DROP AS DIRECTED
     Route: 047
  8. HYDROCODONE/ACETAMINOPHEN [Concomitant]
     Indication: PAIN
     Dosage: 5 MG - 325 MG, EVERY 4 HOURS AS NEEDED
     Route: 048
  9. LISINOPRIL [Concomitant]
     Dosage: 5 MG, DAILY
     Route: 048
  10. ONDANSETRON HYDROCHLORIDE [Concomitant]
     Indication: NAUSEA
     Dosage: 8 MG, EVERY 8 HOURS AS NEEDED
     Route: 048
  11. PREDNISONE [Concomitant]
     Dosage: 20 MG, ONCE AS DIRECTED
     Route: 048
  12. PROCHLORPERAZINE MALEATE [Concomitant]
     Indication: NAUSEA
     Dosage: 10 MG, EVERY 4-6 HOURS AS NEEDED
     Route: 048
  13. PROTONIX [Concomitant]
     Dosage: 40 MG, 1X/DAY
     Route: 048
  14. SIMVASTATIN [Concomitant]
     Dosage: 20 MG, 1X/DAY
     Route: 048

REACTIONS (11)
  - Liver function test abnormal [Not Recovered/Not Resolved]
  - Diarrhoea [Unknown]
  - Nausea [Unknown]
  - Vomiting [Unknown]
  - Malaise [Unknown]
  - Insomnia [Unknown]
  - Fatigue [Unknown]
  - Asthenia [Unknown]
  - Dizziness [Unknown]
  - Disease progression [Unknown]
  - Non-small cell lung cancer metastatic [Unknown]
